FAERS Safety Report 20705663 (Version 4)
Quarter: 2022Q3

REPORT INFORMATION
  Report Type: Report from Study
  Country: CA (occurrence: CA)
  Receive Date: 20220413
  Receipt Date: 20220708
  Transmission Date: 20221026
  Serious: Yes (Hospitalization)
  Sender: FDA-Public Use
  Company Number: CA-MYLANLABS-2022M1014737

PATIENT
  Age: 14 Year
  Sex: Female

DRUGS (3)
  1. HULIO [Suspect]
     Active Substance: ADALIMUMAB-FKJP
     Indication: Colitis ulcerative
     Dosage: 40 MILLIGRAM, QW
  2. HULIO [Suspect]
     Active Substance: ADALIMUMAB-FKJP
     Dosage: 160 MILLIGRAM (REINDUCED ON WEEKEND)
  3. HULIO [Suspect]
     Active Substance: ADALIMUMAB-FKJP
     Dosage: 80 MILLIGRAM, QW

REACTIONS (6)
  - Hospitalisation [Unknown]
  - Condition aggravated [Unknown]
  - Malaise [Not Recovered/Not Resolved]
  - Therapeutic product effect decreased [Unknown]
  - Off label use [Unknown]
  - Product prescribing error [Unknown]
